FAERS Safety Report 7269209-6 (Version None)
Quarter: 2011Q1

REPORT INFORMATION
  Report Type: 
  Country: None (occurrence: None)
  Receive Date: 20110202
  Receipt Date: 20110124
  Transmission Date: 20110831
  Serious: Yes (Other)
  Sender: FDA-Public Use
  Company Number: BE-AMGEN-BELSP2011005676

PATIENT
  Age: 73 Year
  Sex: Male

DRUGS (1)
  1. ENBREL [Suspect]
     Indication: PRODUCT USED FOR UNKNOWN INDICATION
     Dosage: 50 MG, WEEKLY
     Route: 058
     Dates: start: 20101129, end: 20110103

REACTIONS (5)
  - ARRHYTHMIA [None]
  - PYREXIA [None]
  - DIARRHOEA [None]
  - OEDEMA PERIPHERAL [None]
  - MALAISE [None]
